FAERS Safety Report 8450676-7 (Version None)
Quarter: 2012Q2

REPORT INFORMATION
  Report Type: 
  Country: None (occurrence: None)
  Receive Date: 20120620
  Receipt Date: 20120606
  Transmission Date: 20120825
  Serious: Yes (Death)
  Sender: FDA-Public Use
  Company Number: DE-RANBAXY-2012US-57052

PATIENT

DRUGS (10)
  1. TIROFIBAN [Concomitant]
     Dosage: 0.1 MCG/KG/MIN
     Route: 042
  2. ENOXAPARIN [Concomitant]
     Indication: ACUTE CORONARY SYNDROME
     Dosage: 40 MG, BID
     Route: 058
  3. PANTOPRAZOLE [Suspect]
     Indication: PROPHYLAXIS
     Dosage: 40 MG, BID
     Route: 048
  4. CLOPIDOGREL [Concomitant]
     Indication: ACUTE CORONARY SYNDROME
     Dosage: UNK
     Route: 065
  5. CLOPIDOGREL [Concomitant]
     Dosage: 75MG/DAY
     Route: 065
  6. ACETYLSALICYLIC ACID SRT [Concomitant]
     Indication: ACUTE CORONARY SYNDROME
     Dosage: UNK
     Route: 065
  7. ENOXAPARIN [Concomitant]
     Dosage: 1MG/KG
     Route: 058
  8. TIROFIBAN [Concomitant]
     Indication: ACUTE CORONARY SYNDROME
     Dosage: 0.4 MCG/KG/MIN INFUSION FOR 30 MIN
     Route: 042
  9. ACETYLSALICYLIC ACID SRT [Concomitant]
     Dosage: 100MG/DAY
     Route: 065
  10. PANTOPRAZOLE [Suspect]
     Dosage: 40 MG,DAILY
     Route: 058

REACTIONS (1)
  - DEATH [None]
